FAERS Safety Report 16435348 (Version 1)
Quarter: 2019Q2

REPORT INFORMATION
  Report Type: Spontaneous
  Country: FR (occurrence: FR)
  Receive Date: 20190614
  Receipt Date: 20190614
  Transmission Date: 20190711
  Serious: Yes (Hospitalization)
  Sender: FDA-Public Use
  Company Number: FR-CANTON LABORATORIES, LLC-2068245

PATIENT
  Age: 58 Year
  Sex: Female
  Weight: 90 kg

DRUGS (4)
  1. NAPROSYN [Suspect]
     Active Substance: NAPROXEN
     Indication: OSTEOARTHRITIS
     Route: 048
     Dates: start: 201603, end: 201610
  2. VOLTARENE (DICLOFENAC) [Suspect]
     Active Substance: DICLOFENAC
     Route: 048
     Dates: start: 201606, end: 201610
  3. LUTERAN [Concomitant]
     Active Substance: CHLORMADINONE ACETATE
     Route: 048
     Dates: start: 2014
  4. COAPROVEL [Concomitant]
     Active Substance: HYDROCHLOROTHIAZIDE\IRBESARTAN
     Route: 065
     Dates: start: 2010

REACTIONS (2)
  - Interstitial lung disease [Recovered/Resolved]
  - Eosinophilic pneumonia [Recovered/Resolved]

NARRATIVE: CASE EVENT DATE: 201610
